FAERS Safety Report 4590811-4 (Version None)
Quarter: 2005Q1

REPORT INFORMATION
  Report Type: 
  Country: None (occurrence: None)
  Receive Date: 20050225
  Receipt Date: 20050217
  Transmission Date: 20050727
  Serious: Yes (Hospitalization)
  Sender: FDA-Public Use
  Company Number: PHNU2005DE01009

PATIENT
  Sex: Male

DRUGS (10)
  1. CLOZARIL [Suspect]
     Indication: SCHIZOPHRENIA
     Dosage: 25 TO 250MG/DAY
     Route: 048
     Dates: start: 20040210, end: 20040220
  2. CLOZARIL [Suspect]
     Dosage: 400 MG, QD
     Route: 048
     Dates: start: 20040314, end: 20040314
  3. CLOZARIL [Suspect]
     Dosage: 575MG/DAY
     Route: 048
     Dates: start: 20040315, end: 20040315
  4. CLOZARIL [Suspect]
     Dosage: 600MG/DAY
     Route: 048
     Dates: start: 20040308, end: 20040313
  5. CLOZARIL [Suspect]
     Dosage: 300 TO 575 MG/DAY
     Route: 048
     Dates: start: 20040221, end: 20040307
  6. RISPERDAL [Suspect]
     Dosage: 2 TO 6MG/DAY
     Route: 048
     Dates: start: 20031222, end: 20040222
  7. RISPERDAL [Suspect]
     Dosage: 5 TO 4 MG/DAY
     Route: 048
     Dates: start: 20040223, end: 20040301
  8. RISPERDAL [Suspect]
     Dosage: 3MG/DAY
     Route: 048
     Dates: start: 20040302
  9. TRUXAL [Suspect]
     Dosage: 180 TO 260MG/DAY
     Route: 065
     Dates: start: 20031222, end: 20040112
  10. TRUXAL [Suspect]
     Dosage: 300MG/DAY
     Route: 065
     Dates: start: 20040113, end: 20040312

REACTIONS (3)
  - DRUG INTERACTION [None]
  - ELECTROENCEPHALOGRAM ABNORMAL [None]
  - GRAND MAL CONVULSION [None]
